FAERS Safety Report 24621205 (Version 1)
Quarter: 2024Q4

REPORT INFORMATION
  Report Type: Spontaneous
  Country: US (occurrence: US)
  Receive Date: 20241114
  Receipt Date: 20241114
  Transmission Date: 20250115
  Serious: Yes (Hospitalization)
  Sender: BRISTOL-MYERS SQUIBB COMPANY
  Company Number: US-BRISTOL-MYERS SQUIBB COMPANY-2024-174740

PATIENT
  Age: 71 Year
  Sex: Male

DRUGS (1)
  1. POMALYST [Suspect]
     Active Substance: POMALIDOMIDE
     Indication: Dementia
     Dosage: TAKE 1 CAPSULE BY MOUTH WITH OR WITHOUT FOOD EVERY DAY ON DAYS 1-21
     Route: 048

REACTIONS (2)
  - Cellulitis [Recovered/Resolved]
  - Product physical issue [Not Recovered/Not Resolved]
